FAERS Safety Report 8831564 (Version 4)
Quarter: 2014Q2

REPORT INFORMATION
  Report Type: Spontaneous
  Country: US (occurrence: US)
  Receive Date: 20121009
  Receipt Date: 20140526
  Transmission Date: 20141212
  Serious: No
  Sender: FDA-Public Use
  Company Number: US-ASTRAZENECA-2012SE16153

PATIENT
  Age: 72 Year
  Sex: Female
  Weight: 68 kg

DRUGS (10)
  1. NEXIUM [Suspect]
     Route: 048
  2. OMEPRAZOLE [Suspect]
     Route: 048
  3. PRILOSEC OTC [Suspect]
     Route: 048
  4. CRESTOR [Suspect]
     Indication: HYPERLIPIDAEMIA
     Route: 048
  5. CRESTOR [Suspect]
     Indication: BLOOD CHOLESTEROL ABNORMAL
     Route: 048
  6. CRESTOR [Suspect]
     Indication: HYPERLIPIDAEMIA
     Route: 048
  7. CRESTOR [Suspect]
     Indication: BLOOD CHOLESTEROL ABNORMAL
     Route: 048
  8. CRESTOR [Suspect]
     Indication: HYPERLIPIDAEMIA
     Route: 048
     Dates: start: 2009, end: 20140408
  9. CRESTOR [Suspect]
     Indication: BLOOD CHOLESTEROL ABNORMAL
     Route: 048
     Dates: start: 2009, end: 20140408
  10. VITAMINS [Concomitant]

REACTIONS (5)
  - Glaucoma [Unknown]
  - Pain in extremity [Unknown]
  - Blood cholesterol increased [Unknown]
  - Drug dose omission [Unknown]
  - Drug ineffective [Unknown]
